FAERS Safety Report 18014948 (Version 1)
Quarter: 2020Q3

REPORT INFORMATION
  Report Type: Spontaneous
  Country: CA (occurrence: CA)
  Receive Date: 20200713
  Receipt Date: 20200713
  Transmission Date: 20201103
  Serious: Yes (Other)
  Sender: FDA-Public Use
  Company Number: NVSC2020CA195283

PATIENT
  Sex: Female

DRUGS (1)
  1. SANDOZ LETROZOLE FILM?COATED TABLETS 2.5 MG [Suspect]
     Active Substance: LETROZOLE
     Indication: PRODUCT USED FOR UNKNOWN INDICATION
     Dosage: 2.5 MG, UNKNOWN
     Route: 065

REACTIONS (6)
  - Blood glucose increased [Unknown]
  - Palpitations [Unknown]
  - Hypertension [Unknown]
  - COVID-19 [Unknown]
  - Insomnia [Unknown]
  - Anxiety [Unknown]
